FAERS Safety Report 6482861-8 (Version None)
Quarter: 2009Q4

REPORT INFORMATION
  Report Type: 
  Country: None (occurrence: None)
  Receive Date: 20091209
  Receipt Date: 20091026
  Transmission Date: 20100525
  Serious: No
  Sender: FDA-Public Use
  Company Number: US-AMGEN-KDL371371

PATIENT
  Sex: Female

DRUGS (3)
  1. ENBREL [Suspect]
     Indication: RHEUMATOID ARTHRITIS
     Route: 058
     Dates: start: 20090824
  2. METHOTREXATE [Concomitant]
     Route: 048
     Dates: start: 20090824
  3. PLAQUENIL [Concomitant]

REACTIONS (3)
  - DRUG HYPERSENSITIVITY [None]
  - INJECTION SITE PAIN [None]
  - PRURITUS [None]
